FAERS Safety Report 7891884-3 (Version None)
Quarter: 2011Q4

REPORT INFORMATION
  Report Type: 
  Country: None (occurrence: None)
  Receive Date: 20111103
  Receipt Date: 20110811
  Transmission Date: 20120403
  Serious: No
  Sender: FDA-Public Use
  Company Number: US-AMGEN-USASP2011041087

PATIENT
  Age: 59 Year
  Sex: Female
  Weight: 82.086 kg

DRUGS (9)
  1. LISINOPRIL [Concomitant]
     Dosage: 2.5 MG, UNK
  2. VITAMIN D [Concomitant]
     Dosage: UNK
  3. OMEPRAZOLE [Concomitant]
     Dosage: 20 MG, UNK
  4. CALCIUM CITRATE + D [Concomitant]
     Dosage: UNK
  5. ENBREL [Suspect]
     Dosage: 50 MG, QWK
     Route: 058
  6. IBUPROFEN [Concomitant]
     Dosage: 200 MG, UNK
  7. PRAVASTATIN [Concomitant]
     Dosage: 10 MG, UNK
  8. SLEEP AID                          /00000402/ [Concomitant]
     Dosage: 25 MG, UNK
  9. HYDROXYCHLOROQUINE SULFATE [Concomitant]
     Dosage: 200 MG, UNK

REACTIONS (5)
  - INJECTION SITE REACTION [None]
  - INJECTION SITE WARMTH [None]
  - INJECTION SITE ERYTHEMA [None]
  - INJECTION SITE SWELLING [None]
  - INJECTION SITE PAIN [None]
